FAERS Safety Report 9369704 (Version 1)
Quarter: 2013Q2

REPORT INFORMATION
  Report Type: Spontaneous
  Country: US (occurrence: US)
  Receive Date: 20130626
  Receipt Date: 20130626
  Transmission Date: 20140414
  Serious: No
  Sender: FDA-Public Use
  Company Number: US-MYLANLABS-2012S1015167

PATIENT
  Sex: Female

DRUGS (1)
  1. OMEPRAZOLE DELAYED-RELEASE CAPSULES, USP [Suspect]
     Route: 048

REACTIONS (2)
  - Weight decreased [Not Recovered/Not Resolved]
  - Decreased appetite [Not Recovered/Not Resolved]
